FAERS Safety Report 9536356 (Version 1)
Quarter: 2013Q2

REPORT INFORMATION
  Report Type: Spontaneous
  Country: US (occurrence: None)
  Receive Date: 20130507
  Receipt Date: 20130507
  Transmission Date: 20140414
  Serious: Yes (Hospitalization, Other)
  Sender: FDA-Public Use
  Company Number: PHEH2012US03874

PATIENT
  Age: 2 Year
  Sex: Male

DRUGS (5)
  1. AFINITOR (RAD) [Suspect]
     Indication: BRAIN NEOPLASM BENIGN
     Route: 048
     Dates: start: 20111221
  2. SABRIL (VIGABATRIN) [Concomitant]
  3. TAURINE [Concomitant]
  4. CLARITHROMYCIN [Concomitant]
  5. VIMPAT (LACOSAMIDE) [Concomitant]

REACTIONS (3)
  - Viral infection [None]
  - Convulsion [None]
  - Laboratory test abnormal [None]
